FAERS Safety Report 4349257-6 (Version None)
Quarter: 2004Q2

REPORT INFORMATION
  Report Type: 
  Country: None (occurrence: None)
  Receive Date: 20040427
  Receipt Date: 20031113
  Transmission Date: 20050107
  Serious: Yes (Hospitalization)
  Sender: FDA-Public Use
  Company Number: 000698

PATIENT
  Age: 57 Year
  Sex: Male

DRUGS (2)
  1. ZEVALIN [Suspect]
     Indication: LYMPHOMA
     Dosage: SINGLE, RITUXAN DOSE 1, INTRAVENOUS; SINGLE, IN-[111] ZEVALIN, INTRAVENOUS
     Route: 042
     Dates: start: 20031104, end: 20031104
  2. ZEVALIN [Suspect]
     Indication: LYMPHOMA
     Dosage: SINGLE, RITUXAN DOSE 1, INTRAVENOUS; SINGLE, IN-[111] ZEVALIN, INTRAVENOUS
     Route: 042
     Dates: start: 20031104, end: 20031104

REACTIONS (4)
  - CONFUSIONAL STATE [None]
  - DISORIENTATION [None]
  - SEPSIS [None]
  - THROMBOCYTOPENIA [None]
